FAERS Safety Report 4591571-3 (Version None)
Quarter: 2005Q1

REPORT INFORMATION
  Report Type: 
  Country: None (occurrence: None)
  Receive Date: 20050222
  Receipt Date: 20050207
  Transmission Date: 20050727
  Serious: Yes (Other)
  Sender: FDA-Public Use
  Company Number: HQWYE210110FEB05

PATIENT
  Age: 18 Year
  Sex: Female

DRUGS (2)
  1. ADVIL [Suspect]
     Indication: PAIN
     Dosage: 1 GEL CAPLET AS NEEDED, ORAL
     Route: 048
     Dates: start: 20050101, end: 20050101
  2. ADVIL [Suspect]
     Indication: PHARYNGOLARYNGEAL PAIN
     Dosage: 1 GEL CAPLET AS NEEDED, ORAL
     Route: 048
     Dates: start: 20050101, end: 20050101

REACTIONS (2)
  - HYPOTENSION [None]
  - LOSS OF CONSCIOUSNESS [None]
